FAERS Safety Report 24199985 (Version 1)
Quarter: 2024Q3

REPORT INFORMATION
  Report Type: Spontaneous
  Country: US (occurrence: US)
  Receive Date: 20240812
  Receipt Date: 20240812
  Transmission Date: 20241017
  Serious: Yes (Death)
  Sender: PFIZER
  Company Number: US-PFIZER INC-202400233534

PATIENT
  Age: 81 Year
  Sex: Male

DRUGS (1)
  1. TIKOSYN [Suspect]
     Active Substance: DOFETILIDE
     Indication: Atrial fibrillation
     Dosage: 500 UG, ONE CAPSULE BY MOUTH, 2X/DAY
     Route: 048
     Dates: start: 20230127

REACTIONS (1)
  - Death [Fatal]

NARRATIVE: CASE EVENT DATE: 20240419
